FAERS Safety Report 13109901 (Version 1)
Quarter: 2017Q1

REPORT INFORMATION
  Report Type: Spontaneous
  Country: US (occurrence: US)
  Receive Date: 20170112
  Receipt Date: 20170112
  Transmission Date: 20170428
  Serious: Yes (Other)
  Sender: FDA-Public Use
  Company Number: US-ROCHE-1097659

PATIENT
  Age: 41 Year
  Sex: Male

DRUGS (2)
  1. ACTIVASE [Suspect]
     Active Substance: ALTEPLASE
     Indication: ACUTE MYOCARDIAL INFARCTION
     Route: 040
  2. ACTIVASE [Suspect]
     Active Substance: ALTEPLASE
     Dosage: TOTAL 100 MG
     Route: 041

REACTIONS (4)
  - Reocclusion [Unknown]
  - Pyrexia [Unknown]
  - Bronchitis [Unknown]
  - Pain [Unknown]
